FAERS Safety Report 5746655-0 (Version None)
Quarter: 2008Q2

REPORT INFORMATION
  Report Type: 
  Country: None (occurrence: None)
  Receive Date: 20080522
  Receipt Date: 20080512
  Transmission Date: 20081010
  Serious: Yes (Other)
  Sender: FDA-Public Use
  Company Number: PHHY2008MX07884

PATIENT

DRUGS (3)
  1. GLYBURIDE [Concomitant]
  2. INSULIN [Concomitant]
  3. DIOVAN [Suspect]
     Indication: HYPERTENSION
     Dosage: 80 MG, BID
     Route: 048
     Dates: end: 20080401

REACTIONS (7)
  - CATARACT [None]
  - EAR DISORDER [None]
  - EYE INFECTION [None]
  - OEDEMA [None]
  - RENAL FAILURE [None]
  - TACHYPNOEA [None]
  - THROMBOSIS [None]
